FAERS Safety Report 7455572-X (Version None)
Quarter: 2011Q2

REPORT INFORMATION
  Report Type: 
  Country: None (occurrence: None)
  Receive Date: 20110503
  Receipt Date: 20110427
  Transmission Date: 20111010
  Serious: Yes (Other)
  Sender: FDA-Public Use
  Company Number: DE-ROCHE-766433

PATIENT
  Sex: Female
  Weight: 54 kg

DRUGS (3)
  1. BONIVA [Suspect]
     Indication: OSTEOPOROSIS
     Route: 042
     Dates: start: 20080723
  2. DOXICYCLIN [Concomitant]
     Indication: INFECTION
     Route: 048
  3. CALCIMAGON-D3 [Concomitant]
     Route: 048
     Dates: start: 20071011

REACTIONS (5)
  - PRURITUS [None]
  - MALAISE [None]
  - MUSCLE SPASMS [None]
  - ERYTHEMA [None]
  - PARAESTHESIA [None]
